FAERS Safety Report 24792457 (Version 1)
Quarter: 2024Q4

REPORT INFORMATION
  Report Type: Report from Study
  Country: US (occurrence: US)
  Receive Date: 20241231
  Receipt Date: 20241231
  Transmission Date: 20250115
  Serious: Yes (Other)
  Sender: AMGEN
  Company Number: US-AMGEN-USASL2024253500

PATIENT
  Age: 40 Year
  Sex: Female

DRUGS (2)
  1. UPLIZNA [Suspect]
     Active Substance: INEBILIZUMAB-CDON
     Indication: Neuromyelitis optica spectrum disorder
     Dosage: 300 MILLIGRAM, Q2WK  DAY 0 AND DAY 14
     Route: 040
     Dates: start: 20241223
  2. UPLIZNA [Suspect]
     Active Substance: INEBILIZUMAB-CDON
     Dosage: 300 MILLIGRAM, THEN EVERY 6 MONTHS FROM DAY 0
     Route: 040

REACTIONS (1)
  - Dystonia [Unknown]

NARRATIVE: CASE EVENT DATE: 20241201
